FAERS Safety Report 9230583 (Version 3)
Quarter: 2013Q3

REPORT INFORMATION
  Report Type: Report from Study
  Country: JP (occurrence: JP)
  Receive Date: 20130415
  Receipt Date: 20130725
  Transmission Date: 20140515
  Serious: Yes (Death, Hospitalization)
  Sender: FDA-Public Use
  Company Number: JP-AMGEN-JPNCT2013025780

PATIENT
  Age: 90 Year
  Sex: Male
  Weight: 55 kg

DRUGS (33)
  1. DARBEPOETIN ALFA [Suspect]
     Indication: NEPHROGENIC ANAEMIA
     Dosage: 30 MUG, Q2WK
     Route: 040
     Dates: start: 20110615, end: 20110630
  2. DARBEPOETIN ALFA [Suspect]
     Dosage: 30 MUG, QD
     Route: 040
     Dates: start: 20110721, end: 20110721
  3. DARBEPOETIN ALFA [Suspect]
     Dosage: 30 MUG, Q2WK
     Route: 040
     Dates: start: 20110808, end: 20111003
  4. DARBEPOETIN ALFA [Suspect]
     Dosage: 30 MUG, Q4WK
     Route: 040
     Dates: start: 20111031, end: 20120319
  5. DARBEPOETIN ALFA [Suspect]
     Dosage: 30 MUG, QD
     Route: 040
     Dates: start: 20120514, end: 20120514
  6. DARBEPOETIN ALFA [Suspect]
     Dosage: 30 MUG, QD
     Route: 040
     Dates: start: 20120702, end: 20120702
  7. DARBEPOETIN ALFA [Suspect]
     Dosage: 30 MUG, QD
     Route: 040
     Dates: start: 20120810, end: 20120810
  8. OPALMON [Suspect]
     Dosage: UNK
     Route: 048
  9. FUROSEMIDE [Concomitant]
     Indication: DIABETIC NEPHROPATHY
     Dosage: UNK
     Route: 048
  10. PRODEC [Concomitant]
     Dosage: UNK
     Route: 048
  11. FLIVAS [Concomitant]
     Dosage: UNK
     Route: 048
  12. BLOSTAR M [Concomitant]
     Dosage: UNK
     Route: 048
  13. KREMEZIN [Concomitant]
     Indication: DIABETIC NEPHROPATHY
     Dosage: UNK
     Route: 048
  14. MOHRUS L [Concomitant]
     Dosage: UNK
     Route: 062
  15. RINDERON-VG [Concomitant]
     Dosage: UNK
     Route: 061
  16. JUVELA [Concomitant]
     Dosage: UNK
     Route: 061
  17. HIRUDOID [Concomitant]
     Dosage: UNK
     Route: 061
  18. LIDOMEX [Concomitant]
     Dosage: UNK
     Route: 061
  19. OSTELUC [Concomitant]
     Dosage: UNK UNK, AS NECESSARY
     Route: 048
  20. REBAMIPIDE [Concomitant]
     Dosage: UNK UNK, AS NECESSARY
     Route: 048
  21. LOPEMIN [Concomitant]
     Dosage: UNK UNK, AS NECESSARY
     Route: 048
  22. LAC-B [Concomitant]
     Dosage: UNK
     Route: 048
  23. CELESTANA [Concomitant]
     Dosage: UNK
     Route: 048
  24. BASEN [Concomitant]
     Dosage: UNK
     Route: 048
  25. GLIMICRON [Concomitant]
     Dosage: UNK
     Route: 048
  26. SOLITA-T1 [Concomitant]
     Dosage: UNK
     Route: 041
  27. LOXONIN [Concomitant]
     Dosage: UNK
     Route: 048
  28. AMARYL [Concomitant]
     Dosage: UNK
     Route: 048
  29. JANUVIA [Concomitant]
     Dosage: UNK
     Route: 048
  30. GENTACIN [Concomitant]
     Dosage: UNK
     Route: 061
  31. LAMISIL [Concomitant]
     Dosage: UNK
     Route: 061
  32. IDOMETHINE [Concomitant]
     Dosage: UNK
     Route: 061
  33. CLARITH [Concomitant]
     Dosage: UNK
     Route: 048

REACTIONS (5)
  - Marasmus [Fatal]
  - Hypoglycaemia [Recovering/Resolving]
  - Orthostatic hypotension [Recovered/Resolved]
  - Blood pressure decreased [Recovered/Resolved]
  - Fall [Recovered/Resolved]
